FAERS Safety Report 25715192 (Version 1)
Quarter: 2025Q3

REPORT INFORMATION
  Report Type: Spontaneous
  Country: EU (occurrence: CH)
  Receive Date: 20250822
  Receipt Date: 20250822
  Transmission Date: 20251020
  Serious: Yes (Life-Threatening, Hospitalization)
  Sender: MYLAN
  Company Number: None

PATIENT
  Age: 64 Year
  Sex: Female
  Weight: 61 kg

DRUGS (32)
  1. AMLODIPINE [Suspect]
     Active Substance: AMLODIPINE BESYLATE
     Indication: Product used for unknown indication
  2. AMLODIPINE [Suspect]
     Active Substance: AMLODIPINE BESYLATE
     Route: 065
  3. AMLODIPINE [Suspect]
     Active Substance: AMLODIPINE BESYLATE
     Route: 065
  4. AMLODIPINE [Suspect]
     Active Substance: AMLODIPINE BESYLATE
  5. ZOLEDRONIC ACID ANHYDROUS [Concomitant]
     Active Substance: ZOLEDRONIC ACID ANHYDROUS
     Indication: Osteoporosis
     Dates: start: 20250702, end: 20250702
  6. ZOLEDRONIC ACID ANHYDROUS [Concomitant]
     Active Substance: ZOLEDRONIC ACID ANHYDROUS
     Route: 042
     Dates: start: 20250702, end: 20250702
  7. ZOLEDRONIC ACID ANHYDROUS [Concomitant]
     Active Substance: ZOLEDRONIC ACID ANHYDROUS
     Route: 042
     Dates: start: 20250702, end: 20250702
  8. ZOLEDRONIC ACID ANHYDROUS [Concomitant]
     Active Substance: ZOLEDRONIC ACID ANHYDROUS
     Dates: start: 20250702, end: 20250702
  9. IBUPROFEN [Concomitant]
     Active Substance: IBUPROFEN
     Indication: Product used for unknown indication
  10. IBUPROFEN [Concomitant]
     Active Substance: IBUPROFEN
     Route: 065
  11. IBUPROFEN [Concomitant]
     Active Substance: IBUPROFEN
     Route: 065
  12. IBUPROFEN [Concomitant]
     Active Substance: IBUPROFEN
  13. FLUPENTIXOL [Concomitant]
     Active Substance: FLUPENTIXOL
     Indication: Product used for unknown indication
     Dosage: 5 MILLIGRAM, Q8H
  14. FLUPENTIXOL [Concomitant]
     Active Substance: FLUPENTIXOL
     Dosage: 5 MILLIGRAM, Q8H
     Route: 065
  15. FLUPENTIXOL [Concomitant]
     Active Substance: FLUPENTIXOL
     Dosage: 5 MILLIGRAM, Q8H
     Route: 065
  16. FLUPENTIXOL [Concomitant]
     Active Substance: FLUPENTIXOL
     Dosage: 5 MILLIGRAM, Q8H
  17. Aripiprazol mepha [Concomitant]
     Indication: Product used for unknown indication
     Dosage: 15 MILLIGRAM, QD
  18. Aripiprazol mepha [Concomitant]
     Dosage: 15 MILLIGRAM, QD
     Route: 065
  19. Aripiprazol mepha [Concomitant]
     Dosage: 15 MILLIGRAM, QD
     Route: 065
  20. Aripiprazol mepha [Concomitant]
     Dosage: 15 MILLIGRAM, QD
  21. CLOZAPINE [Concomitant]
     Active Substance: CLOZAPINE
     Indication: Product used for unknown indication
     Dosage: 150 MILLIGRAM, QD
  22. CLOZAPINE [Concomitant]
     Active Substance: CLOZAPINE
     Dosage: 150 MILLIGRAM, QD
     Route: 065
  23. CLOZAPINE [Concomitant]
     Active Substance: CLOZAPINE
     Dosage: 150 MILLIGRAM, QD
     Route: 065
  24. CLOZAPINE [Concomitant]
     Active Substance: CLOZAPINE
     Dosage: 150 MILLIGRAM, QD
  25. AKINETON [Concomitant]
     Active Substance: BIPERIDEN HYDROCHLORIDE
     Indication: Product used for unknown indication
  26. AKINETON [Concomitant]
     Active Substance: BIPERIDEN HYDROCHLORIDE
     Route: 065
  27. AKINETON [Concomitant]
     Active Substance: BIPERIDEN HYDROCHLORIDE
     Route: 065
  28. AKINETON [Concomitant]
     Active Substance: BIPERIDEN HYDROCHLORIDE
  29. CALCIUM\CHOLECALCIFEROL [Concomitant]
     Active Substance: CALCIUM\CHOLECALCIFEROL
     Indication: Product used for unknown indication
  30. CALCIUM\CHOLECALCIFEROL [Concomitant]
     Active Substance: CALCIUM\CHOLECALCIFEROL
     Route: 065
  31. CALCIUM\CHOLECALCIFEROL [Concomitant]
     Active Substance: CALCIUM\CHOLECALCIFEROL
     Route: 065
  32. CALCIUM\CHOLECALCIFEROL [Concomitant]
     Active Substance: CALCIUM\CHOLECALCIFEROL

REACTIONS (2)
  - Acute kidney injury [Recovering/Resolving]
  - Skin lesion [Recovering/Resolving]

NARRATIVE: CASE EVENT DATE: 20250703
